FAERS Safety Report 8479778-6 (Version None)
Quarter: 2012Q2

REPORT INFORMATION
  Report Type: 
  Country: None (occurrence: None)
  Receive Date: 20120629
  Receipt Date: 20120621
  Transmission Date: 20120825
  Serious: Yes (Hospitalization, Other)
  Sender: FDA-Public Use
  Company Number: US-ABBOTT-12P-163-0948916-00

PATIENT
  Sex: Female
  Weight: 74.91 kg

DRUGS (2)
  1. HUMIRA [Suspect]
     Indication: RHEUMATOID ARTHRITIS
     Route: 058
     Dates: start: 20050220, end: 20120302
  2. HUMIRA [Suspect]
     Route: 058
     Dates: start: 20120513

REACTIONS (7)
  - DEVICE FAILURE [None]
  - CORONARY ARTERY OCCLUSION [None]
  - FEELING ABNORMAL [None]
  - DIABETES MELLITUS [None]
  - CAROTID ARTERY OCCLUSION [None]
  - DYSPNOEA [None]
  - CHEST DISCOMFORT [None]
